FAERS Safety Report 8855967 (Version 1)
Quarter: 2012Q4

REPORT INFORMATION
  Report Type: 
  Country: US (occurrence: US)
  Receive Date: 20121023
  Receipt Date: 20121023
  Transmission Date: 20130627
  Serious: No
  Sender: FDA-Public Use
  Company Number: US-AMGEN-USASP2012058440

PATIENT
  Age: 49 Year
  Sex: Male
  Weight: 81.63 kg

DRUGS (5)
  1. ENBREL [Suspect]
     Indication: PRODUCT USED FOR UNKNOWN INDICATION
     Dosage: 50 mg, qwk
     Route: 058
  2. NAPROXEN [Concomitant]
     Dosage: 250 mg, UNK
  3. ALEVE [Concomitant]
     Dosage: 220 mg, UNK
  4. ADVIL                              /00044201/ [Concomitant]
     Dosage: 200 mg, UNK
  5. DECONGESTANT                       /00070002/ [Concomitant]

REACTIONS (1)
  - Bursitis infective [Recovered/Resolved]
